FAERS Safety Report 9448989 (Version 2)
Quarter: 2014Q2

REPORT INFORMATION
  Report Type: Spontaneous
  Country: US (occurrence: US)
  Receive Date: 20130808
  Receipt Date: 20140402
  Transmission Date: 20141212
  Serious: Yes (Hospitalization)
  Sender: FDA-Public Use
  Company Number: US-B.I. PHARMACEUTICALS,INC./RIDGEFIELD-2013-BI-23870BP

PATIENT
  Sex: Female
  Weight: 129.73 kg

DRUGS (11)
  1. PRADAXA [Suspect]
     Indication: ATRIAL FIBRILLATION
     Dosage: 300 MG
     Route: 065
     Dates: start: 20101230, end: 20110616
  2. FLUOXETINE [Concomitant]
     Dosage: 40 MG
     Route: 065
     Dates: start: 2001, end: 2011
  3. ARIXTRA [Concomitant]
     Dosage: 60 MG
     Route: 065
  4. RAMIPRIL [Concomitant]
     Dosage: 5 MG
     Route: 065
  5. SPIRONOLACTONE [Concomitant]
     Dosage: 25 MG
     Route: 065
  6. LASIX [Concomitant]
     Dosage: 40 MG
     Route: 065
  7. GABAPENTIN [Concomitant]
     Dosage: 1200 MG
     Route: 065
     Dates: start: 1998, end: 2012
  8. GEMFIBROZIL [Concomitant]
     Dosage: 1200 MG
     Route: 065
     Dates: start: 2005, end: 2012
  9. MULTIVITAMIN [Concomitant]
     Route: 065
  10. HYDROCODONE/APAP [Concomitant]
     Route: 065
     Dates: start: 2008, end: 2012
  11. AMBIEN [Concomitant]
     Dosage: 5 MG
     Route: 065
     Dates: start: 2005, end: 2012

REACTIONS (2)
  - Upper gastrointestinal haemorrhage [Recovered/Resolved]
  - Anaemia [Unknown]
